FAERS Safety Report 16005249 (Version 1)
Quarter: 2019Q1

REPORT INFORMATION
  Report Type: Spontaneous
  Country: US (occurrence: US)
  Receive Date: 20190131
  Receipt Date: 20190131
  Transmission Date: 20190418
  Serious: No
  Sender: FDA-Public Use
  Company Number: None

PATIENT
  Age: 84 Year
  Sex: Female

DRUGS (1)
  1. REPATHA [Suspect]
     Active Substance: EVOLOCUMAB
     Indication: TYPE V HYPERLIPIDAEMIA
     Dosage: ?          OTHER FREQUENCY:EVERY 14 DAYS ;?FROM 11/15/2019  TO 01/2019
     Route: 058
     Dates: end: 201901

REACTIONS (2)
  - Back pain [None]
  - Influenza [None]

NARRATIVE: CASE EVENT DATE: 201901
